FAERS Safety Report 5421761-9 (Version None)
Quarter: 2007Q3

REPORT INFORMATION
  Report Type: 
  Country: None (occurrence: None)
  Receive Date: 20070821
  Receipt Date: 20070813
  Transmission Date: 20080115
  Serious: Yes (Hospitalization)
  Sender: FDA-Public Use
  Company Number: CH-PFIZER INC-2007068255

PATIENT
  Sex: Female

DRUGS (6)
  1. NEURONTIN [Suspect]
     Route: 048
     Dates: start: 20061117, end: 20061117
  2. ZYRTEC [Suspect]
     Route: 048
     Dates: start: 20061117, end: 20061117
  3. PREDNISONE TAB [Suspect]
     Route: 048
     Dates: start: 20061117, end: 20061117
  4. PARACETAMOL [Suspect]
     Route: 048
     Dates: start: 20061117, end: 20061117
  5. SEROPRAM [Suspect]
     Route: 048
     Dates: start: 20061117, end: 20061117
  6. ECOFENAC [Suspect]
     Route: 048
     Dates: start: 20061117, end: 20061117

REACTIONS (3)
  - COMA [None]
  - DRUG TOXICITY [None]
  - SUICIDE ATTEMPT [None]
